FAERS Safety Report 6698744-4 (Version None)
Quarter: 2010Q2

REPORT INFORMATION
  Report Type: 
  Country: None (occurrence: None)
  Receive Date: 20100427
  Receipt Date: 20100415
  Transmission Date: 20101027
  Serious: Yes (Hospitalization)
  Sender: FDA-Public Use
  Company Number: PHHY2010DE24584

PATIENT
  Sex: Male

DRUGS (1)
  1. CRANOC (LICENSED, ASTRA) [Suspect]
     Indication: HYPERCHOLESTEROLAEMIA
     Dosage: 20 MG/D
     Route: 048

REACTIONS (3)
  - NEPHROLITHIASIS [None]
  - RENAL COLIC [None]
  - RENAL STONE REMOVAL [None]
